FAERS Safety Report 5113231-2 (Version None)
Quarter: 2006Q3

REPORT INFORMATION
  Report Type: 
  Country: None (occurrence: None)
  Receive Date: 20060922
  Receipt Date: 20060808
  Transmission Date: 20061208
  Serious: Yes (Death, Life-Threatening, Hospitalization)
  Sender: FDA-Public Use
  Company Number: MX-MERCK-0608MEX00007

PATIENT
  Age: 80 Year
  Sex: Female
  Weight: 40 kg

DRUGS (3)
  1. FOSAMAX PLUS D [Suspect]
     Indication: OSTEOPOROSIS
     Route: 048
     Dates: start: 20060601, end: 20060801
  2. [THERAPY UNSPECIFIED] [Concomitant]
     Indication: PROPHYLAXIS
     Route: 048
     Dates: start: 20060401, end: 20060801
  3. AMLODIPINE BESYLATE [Concomitant]
     Indication: CARDIAC FAILURE
     Route: 048
     Dates: start: 20060201, end: 20060801

REACTIONS (9)
  - FALL [None]
  - HAEMATOMA [None]
  - LIMB INJURY [None]
  - LIMB TRAUMATIC AMPUTATION [None]
  - PAIN [None]
  - PAIN IN EXTREMITY [None]
  - RESPIRATORY ARREST [None]
  - SYNCOPE [None]
  - VENOUS THROMBOSIS LIMB [None]
